FAERS Safety Report 13361569 (Version 1)
Quarter: 2017Q1

REPORT INFORMATION
  Report Type: Spontaneous
  Country: US (occurrence: US)
  Receive Date: 20170323
  Receipt Date: 20170323
  Transmission Date: 20170429
  Serious: Yes (Hospitalization, Disabling, Other)
  Sender: FDA-Public Use
  Company Number: US-ASTRAZENECA-2017SE28906

PATIENT
  Sex: Female
  Weight: 68 kg

DRUGS (1)
  1. BRILINTA [Suspect]
     Active Substance: TICAGRELOR
     Route: 048
     Dates: start: 201508

REACTIONS (3)
  - Off label use [Unknown]
  - Product use issue [Unknown]
  - Cerebrovascular accident [Unknown]
